FAERS Safety Report 4612274-2 (Version None)
Quarter: 2005Q1

REPORT INFORMATION
  Report Type: 
  Country: None (occurrence: None)
  Receive Date: 20050316
  Receipt Date: 20050301
  Transmission Date: 20050727
  Serious: Yes (Death)
  Sender: FDA-Public Use
  Company Number: DSA_70595_2005

PATIENT
  Sex: 0

DRUGS (1)
  1. ROXANOL [Suspect]
     Dosage: DF

REACTIONS (1)
  - RESPIRATORY DEPRESSION [None]
